FAERS Safety Report 12054539 (Version 1)
Quarter: 2016Q1

REPORT INFORMATION
  Report Type: Report from Study
  Country: US (occurrence: US)
  Receive Date: 20160209
  Receipt Date: 20160209
  Transmission Date: 20160526
  Serious: Yes (Other)
  Sender: FDA-Public Use
  Company Number: US-ABBVIE-15P-163-1469108-00

PATIENT
  Sex: Female

DRUGS (2)
  1. HUMIRA [Suspect]
     Active Substance: ADALIMUMAB
     Indication: JUVENILE IDIOPATHIC ARTHRITIS
     Route: 065
     Dates: start: 20150917
  2. HUMIRA [Suspect]
     Active Substance: ADALIMUMAB
     Indication: UVEITIS
     Route: 065
     Dates: end: 201412

REACTIONS (8)
  - Tonsillitis [Unknown]
  - Nasopharyngitis [Unknown]
  - Blister [Unknown]
  - Oropharyngeal pain [Unknown]
  - Uveitis [Unknown]
  - Streptococcal infection [Unknown]
  - Headache [Unknown]
  - Abdominal pain upper [Unknown]
